FAERS Safety Report 5968143-9 (Version None)
Quarter: 2008Q4

REPORT INFORMATION
  Report Type: 
  Country: None (occurrence: None)
  Receive Date: 20081121
  Receipt Date: 20081121
  Transmission Date: 20090506
  Serious: Yes (Other)
  Sender: FDA-Public Use
  Company Number: None

PATIENT

DRUGS (1)
  1. LEVAQUIN [Suspect]
     Dosage: 750 MG
     Dates: start: 20081001, end: 20081010

REACTIONS (2)
  - PAIN IN EXTREMITY [None]
  - TENDON PAIN [None]
